FAERS Safety Report 6764891-1 (Version None)
Quarter: 2010Q2

REPORT INFORMATION
  Report Type: 
  Country: None (occurrence: None)
  Receive Date: 20100610
  Receipt Date: 20100604
  Transmission Date: 20101027
  Serious: Yes (Hospitalization)
  Sender: FDA-Public Use
  Company Number: JP-ABBOTT-09P-087-0613514-00

PATIENT
  Sex: Female

DRUGS (5)
  1. HUMIRA [Suspect]
     Indication: PSORIASIS
     Route: 058
     Dates: start: 20060920, end: 20080310
  2. HUMIRA [Suspect]
     Route: 058
     Dates: start: 20080324
  3. ADALAT CC [Concomitant]
     Indication: BLOOD PRESSURE INCREASED
     Route: 048
     Dates: start: 20070720
  4. NU-LOTAN [Concomitant]
     Indication: BLOOD PRESSURE INCREASED
     Dates: start: 20071026
  5. AZUNOL [Concomitant]
     Indication: PSORIASIS
     Dates: start: 20090311, end: 20100120

REACTIONS (2)
  - ANKLE FRACTURE [None]
  - JOINT DISLOCATION [None]
